FAERS Safety Report 19680910 (Version 3)
Quarter: 2021Q3

REPORT INFORMATION
  Report Type: Report from Study
  Country: FI (occurrence: FI)
  Receive Date: 20210810
  Receipt Date: 20210916
  Transmission Date: 20211014
  Serious: Yes (Hospitalization, Other)
  Sender: FDA-Public Use
  Company Number: FI-MYLANLABS-2021M1049278

PATIENT
  Age: 34 Year
  Sex: Female

DRUGS (22)
  1. LEPONEX 100 MG TABLET [Suspect]
     Active Substance: CLOZAPINE
     Indication: SCHIZOPHRENIA
     Dosage: 125 MILLIGRAM, QD
     Dates: start: 2000, end: 202108
  2. LEPONEX [Interacting]
     Active Substance: CLOZAPINE
     Indication: SCHIZOPHRENIA
     Dosage: 75 MILLIGRAM, QD
     Dates: start: 20210730, end: 202108
  3. COVID?19 VACCINE NOS. [Interacting]
     Active Substance: COVID-19 VACCINE NOS
     Dosage: SECOND DOSE
     Dates: start: 20210727, end: 20210727
  4. DEPRAKINE                          /00228502/ [Concomitant]
     Active Substance: VALPROATE SODIUM
     Dosage: 1500 MILLIGRAM, QD
     Dates: end: 20210722
  5. LAMOTRIGINE ORION [Concomitant]
     Dosage: 150 MILLIGRAM, QD
     Dates: start: 20210705, end: 20210728
  6. AMORION [Concomitant]
     Active Substance: AMOXICILLIN
     Indication: OTITIS MEDIA
     Dosage: 750 MILLIGRAM, BID
     Dates: start: 20210803, end: 202108
  7. PANADOL FORTE                      /00020001/ [Concomitant]
     Active Substance: ACETAMINOPHEN
     Indication: PYREXIA
     Dosage: 1 GRAM, TID
     Dates: start: 202108, end: 202108
  8. DEPRAKINE                          /00228502/ [Concomitant]
     Active Substance: VALPROATE SODIUM
     Dosage: 1 GRAM, QD
     Dates: start: 20210722
  9. DEPRAKINE                          /00228501/ [Concomitant]
     Active Substance: VALPROATE SODIUM
     Dosage: 1000 MILLIGRAM, QD
     Dates: start: 20210722
  10. ATROVENT [Concomitant]
     Active Substance: IPRATROPIUM BROMIDE
     Dosage: 2 SPRAY QD
  11. KETIPINOR [Concomitant]
     Active Substance: QUETIAPINE FUMARATE
     Dosage: SINGLE DOSE 25 MG, DAILY MAXIMUM DOSE 50 MG
  12. LEVOZIN                            /00038602/ [Concomitant]
     Active Substance: LEVOMEPROMAZINE MALEATE
     Dosage: 150 MILLIGRAM, QD
     Dates: end: 20210722
  13. PEGORION [Concomitant]
     Active Substance: POLYETHYLENE GLYCOL 4000
     Dosage: SINGLE DOSE MAXIMUM 1 SACHET [12 G], DAILY DOSE MAXIMUM 2 SACHETS [24 G]
  14. LEPONEX 100 MG TABLET [Interacting]
     Active Substance: CLOZAPINE
     Dosage: 125 MILLIGRAM, QD
     Dates: start: 200409, end: 20210730
  15. PANADOL FORTE                      /00020001/ [Concomitant]
     Active Substance: ACETAMINOPHEN
     Dosage: 1 GRAM, PRN
     Dates: start: 202108
  16. LAMOTRIGINE ORION [Concomitant]
     Dosage: 100 MILLIGRAM, QD
  17. LAMOTRIGINE ORION [Concomitant]
     Dosage: 100 MILLIGRAM, BID
     Dates: start: 202002, end: 20210705
  18. COVID?19 VACCINE NOS. [Interacting]
     Active Substance: COVID-19 VACCINE NOS
     Indication: PRODUCT USED FOR UNKNOWN INDICATION
     Dosage: FIRST DOSE
     Dates: start: 20210429, end: 20210429
  19. KETIPINOR [Concomitant]
     Active Substance: QUETIAPINE FUMARATE
     Dosage: 50 MILLIGRAM, QD
     Route: 048
     Dates: start: 202002, end: 20210722
  20. LEVOZIN                            /00038602/ [Concomitant]
     Active Substance: LEVOMEPROMAZINE MALEATE
     Dosage: 150 MILLIGRAM, QD
     Dates: start: 20210722, end: 20210728
  21. PROPRAL [Concomitant]
     Active Substance: PROPRANOLOL HYDROCHLORIDE
     Dosage: SINGLE DOSE MAXIMUM 10 MG, DAILY DOSE MAXIMUM 20 MG
  22. LEPONEX 25 MG TABLET [Interacting]
     Active Substance: CLOZAPINE
     Indication: SCHIZOPHRENIA
     Dosage: 12.5 MG AS NEEDED, SINGLE MAXIMUM DOSE 25 MG, DAILY MAXIMUM DOSE 25 MG

REACTIONS (7)
  - Otitis media [Unknown]
  - COVID-19 [Unknown]
  - C-reactive protein decreased [Unknown]
  - Influenza like illness [Unknown]
  - Drug interaction [Recovered/Resolved]
  - Off label use [Unknown]
  - Neutropenia [Recovered/Resolved]

NARRATIVE: CASE EVENT DATE: 20210705
